FAERS Safety Report 12456175 (Version 2)
Quarter: 2016Q2

REPORT INFORMATION
  Report Type: Spontaneous
  Country: JP (occurrence: JP)
  Receive Date: 20160610
  Receipt Date: 20160628
  Transmission Date: 20160815
  Serious: Yes (Death, Other)
  Sender: FDA-Public Use
  Company Number: JP-TEVA-665575ISR

PATIENT
  Age: 6 Decade
  Sex: Male
  Weight: 74.5 kg

DRUGS (4)
  1. PAROXETINE. [Suspect]
     Active Substance: PAROXETINE
     Indication: DEPRESSION
     Route: 065
  2. PROPANOL [Suspect]
     Active Substance: PROPRANOLOL HYDROCHLORIDE
     Route: 065
  3. ETHANOL [Suspect]
     Active Substance: ALCOHOL
     Route: 065
  4. FLUNITRAZEPAM [Interacting]
     Active Substance: FLUNITRAZEPAM
     Route: 065

REACTIONS (3)
  - Alcohol interaction [Fatal]
  - Drug interaction [Fatal]
  - Toxicity to various agents [Fatal]
